FAERS Safety Report 10583390 (Version 3)
Quarter: 2014Q4

REPORT INFORMATION
  Report Type: Spontaneous
  Country: US (occurrence: None)
  Receive Date: 20141112
  Receipt Date: 20141128
  Transmission Date: 20150529
  Serious: Yes (Hospitalization)
  Sender: FDA-Public Use
  Company Number: 2014-US-013701

PATIENT
  Age: 58 Year
  Sex: Female
  Weight: 135.6 kg

DRUGS (20)
  1. EFFEXOR XR [Concomitant]
     Active Substance: VENLAFAXINE HYDROCHLORIDE
  2. PROPRANOLOL (PROPRANOLOL HYDROCHLORIDE) [Concomitant]
  3. ADVAIR DISKUS [Concomitant]
     Active Substance: FLUTICASONE PROPIONATE\SALMETEROL XINAFOATE
  4. BACTROBAN (MUPIROCIN) [Concomitant]
  5. FISH OIL (FISH OIL) [Concomitant]
     Active Substance: FISH OIL
  6. COUMADIN [Concomitant]
     Active Substance: WARFARIN SODIUM
  7. ADDERALL [Concomitant]
     Active Substance: AMPHETAMINE ASPARTATE\AMPHETAMINE SULFATE\DEXTROAMPHETAMINE SACCHARATE\DEXTROAMPHETAMINE SULFATE
  8. ALBUTEROL DUONEB (IPRATROPIUM BROMIDE, SALBUTAMOL SULFATE) [Concomitant]
  9. SALICYLATE SODIUM (SALICYLATE SODIUM) [Concomitant]
  10. ALLOPURINOL (ALLOPURINOL) [Concomitant]
     Active Substance: ALLOPURINOL
  11. NEURONTIN [Concomitant]
     Active Substance: GABAPENTIN
  12. LEVEMIR [Concomitant]
     Active Substance: INSULIN DETEMIR
  13. XYREM [Suspect]
     Active Substance: SODIUM OXYBATE
     Indication: NARCOLEPSY
     Route: 048
     Dates: start: 20141003
  14. METFORMIN HCL (METFORMIN HYDROCHLORIDE) [Concomitant]
  15. ASPIRIN (ACETYLSALICYLIC ACID) [Concomitant]
     Active Substance: ASPIRIN
  16. TRIAMCINOLONE ACETONIDE (TRIAMCINOLONE ACETONIDE) [Concomitant]
  17. HYDROCODONE (HYDROCODONE BITARTRATE) [Concomitant]
     Active Substance: HYDROCODONE BITARTRATE
  18. ZESTORELIC (HYDROCHLOROTHIAZIDE, LISINOPRIL) [Concomitant]
  19. FAMOTIDINE (FAMOTIDINE) [Concomitant]
     Active Substance: FAMOTIDINE
  20. SINULAIR (MONTELUKAST SODIUM) [Concomitant]

REACTIONS (2)
  - Respiratory failure [None]
  - Asthma [None]

NARRATIVE: CASE EVENT DATE: 201410
